FAERS Safety Report 13791649 (Version 1)
Quarter: 2017Q3

REPORT INFORMATION
  Report Type: Spontaneous
  Country: US (occurrence: US)
  Receive Date: 20170725
  Receipt Date: 20170725
  Transmission Date: 20171127
  Serious: Yes (Death, Hospitalization, Other)
  Sender: FDA-Public Use
  Company Number: US-TEVA-790784USA

PATIENT
  Sex: Male

DRUGS (12)
  1. LEUSTATIN [Concomitant]
     Active Substance: CLADRIBINE
     Route: 042
     Dates: start: 20170517, end: 20170518
  2. LEUSTATIN [Concomitant]
     Active Substance: CLADRIBINE
     Route: 042
     Dates: start: 20170519, end: 20170519
  3. CALCIUM GLUCONATE. [Concomitant]
     Active Substance: CALCIUM GLUCONATE
  4. MIACALCIN [Concomitant]
     Active Substance: CALCITONIN SALMON
     Dates: start: 20170426, end: 20170428
  5. CYTARABINE HYDROCHLORIDE 100MG/5ML SDV AND 500MG/10ML SDV [Suspect]
     Active Substance: CYTARABINE HYDROCHLORIDE
     Indication: ACUTE MYELOID LEUKAEMIA
     Dosage: 40 MILLIGRAM DAILY;
     Route: 058
     Dates: start: 20170501, end: 20170508
  6. INVESTIGATIONAL DRUG [Concomitant]
     Active Substance: INVESTIGATIONAL PRODUCT
     Indication: PROPHYLAXIS
     Route: 048
     Dates: start: 20170526, end: 20170531
  7. DEXTROSE. [Concomitant]
     Active Substance: DEXTROSE
     Dates: start: 20170519, end: 20170520
  8. ZYLOPRIM [Concomitant]
     Active Substance: ALLOPURINOL
     Dates: start: 20170425, end: 20170428
  9. XGEVA [Concomitant]
     Active Substance: DENOSUMAB
     Dates: start: 20170428, end: 20170428
  10. LEUSTATIN [Concomitant]
     Active Substance: CLADRIBINE
     Indication: ACUTE MYELOID LEUKAEMIA
     Route: 042
     Dates: start: 20170426, end: 20170428
  11. CYTARABINE HYDROCHLORIDE 100MG/5ML SDV AND 500MG/10ML SDV [Suspect]
     Active Substance: CYTARABINE HYDROCHLORIDE
     Route: 042
     Dates: start: 20170517, end: 20170519
  12. LASIX [Concomitant]
     Active Substance: FUROSEMIDE

REACTIONS (1)
  - Tumour lysis syndrome [Recovered/Resolved]

NARRATIVE: CASE EVENT DATE: 20170520
